FAERS Safety Report 6967788-7 (Version None)
Quarter: 2010Q3

REPORT INFORMATION
  Report Type: 
  Country: None (occurrence: None)
  Receive Date: 20100907
  Receipt Date: 20100831
  Transmission Date: 20110219
  Serious: Yes (Other)
  Sender: FDA-Public Use
  Company Number: AU-BAYER-201037554GPV

PATIENT
  Age: 36 Year
  Sex: Male

DRUGS (1)
  1. MAGNEVIST [Suspect]
     Indication: NUCLEAR MAGNETIC RESONANCE IMAGING
     Route: 042
     Dates: start: 20100813, end: 20100813

REACTIONS (4)
  - BRADYCARDIA [None]
  - DYSARTHRIA [None]
  - HYPERHIDROSIS [None]
  - VOMITING [None]
